FAERS Safety Report 17268356 (Version 3)
Quarter: 2020Q1

REPORT INFORMATION
  Report Type: Spontaneous
  Country: US (occurrence: US)
  Receive Date: 20200114
  Receipt Date: 20200124
  Transmission Date: 20200409
  Serious: Yes (Other)
  Sender: FDA-Public Use
  Company Number: US-PFIZER INC-2020014601

PATIENT
  Age: 85 Year
  Sex: Male

DRUGS (1)
  1. VYNDAMAX [Suspect]
     Active Substance: TAFAMIDIS
     Indication: FAMILIAL AMYLOIDOSIS
     Dosage: 61 MG, UNK

REACTIONS (7)
  - Blindness [Unknown]
  - Balance disorder [Unknown]
  - Auditory disorder [Unknown]
  - Neuropathy peripheral [Unknown]
  - Gait disturbance [Unknown]
  - Cardiac amyloidosis [Unknown]
  - Retinal dystrophy [Unknown]
